FAERS Safety Report 25467385 (Version 1)
Quarter: 2025Q2

REPORT INFORMATION
  Report Type: Spontaneous
  Country: US (occurrence: None)
  Receive Date: 20250621
  Receipt Date: 20250621
  Transmission Date: 20250717
  Serious: Yes (Death, Disabling)
  Sender: FDA-CTU
  Company Number: None

PATIENT
  Age: 21 Year
  Sex: Male
  Weight: 74.25 kg

DRUGS (2)
  1. ACCUTANE [Suspect]
     Active Substance: ISOTRETINOIN
     Indication: Acne
     Dosage: OTHER QUANTITY : 1 TABLET(S);?FREQUENCY : TWICE A DAY;?
     Route: 048
     Dates: start: 20230911, end: 20240311
  2. ZENATANE [Suspect]
     Active Substance: ISOTRETINOIN

REACTIONS (11)
  - Anxiety [None]
  - Depression [None]
  - Derealisation [None]
  - Hallucination, auditory [None]
  - Hallucination, visual [None]
  - Anger [None]
  - Asthenia [None]
  - Completed suicide [None]
  - Social problem [None]
  - Drug monitoring procedure not performed [None]
  - Product prescribing issue [None]

NARRATIVE: CASE EVENT DATE: 20240301
